FAERS Safety Report 13298803 (Version 2)
Quarter: 2017Q1

REPORT INFORMATION
  Report Type: Report from Study
  Country: US (occurrence: US)
  Receive Date: 20170306
  Receipt Date: 20170316
  Transmission Date: 20170428
  Serious: Yes (Hospitalization)
  Sender: FDA-Public Use
  Company Number: US-PFIZER INC-2017081877

PATIENT
  Age: 64 Year
  Sex: Female
  Weight: 74.83 kg

DRUGS (28)
  1. BLINDED NAPROXEN [Suspect]
     Active Substance: NAPROXEN
     Indication: OSTEOARTHRITIS
     Dosage: 1.0 ML EVERY 8 WEEKS
     Route: 058
     Dates: start: 20160831, end: 20161024
  2. BLINDED PLACEBO [Suspect]
     Active Substance: INVESTIGATIONAL PRODUCT
     Indication: OSTEOARTHRITIS
     Dosage: 1.0 ML EVERY 8 WEEKS
     Route: 058
     Dates: start: 20160831, end: 20161024
  3. BLINDED PLACEBO [Suspect]
     Active Substance: INVESTIGATIONAL PRODUCT
     Indication: OSTEOARTHRITIS
     Dosage: 1.0 ML EVERY 8 WEEKS
     Route: 058
     Dates: start: 20160831, end: 20161024
  4. BLINDED DICLOFENAC [Suspect]
     Active Substance: DICLOFENAC
     Indication: OSTEOARTHRITIS
     Dosage: 1.0 ML EVERY 8 WEEKS
     Route: 058
     Dates: start: 20160831, end: 20161024
  5. BLINDED CELECOXIB [Suspect]
     Active Substance: CELECOXIB
     Dosage: 100 MG, 2X/DAY
     Route: 048
     Dates: start: 20160801, end: 20161023
  6. BLINDED NAPROXEN [Suspect]
     Active Substance: NAPROXEN
     Dosage: 100 MG, 2X/DAY
     Route: 048
     Dates: start: 20160801, end: 20161023
  7. BLINDED PF-04383119 [Suspect]
     Active Substance: TANEZUMAB
     Dosage: 100 MG, 2X/DAY
     Route: 048
     Dates: start: 20160801, end: 20161023
  8. BLINDED PLACEBO [Suspect]
     Active Substance: INVESTIGATIONAL PRODUCT
     Dosage: 100 MG, 2X/DAY
     Route: 048
     Dates: start: 20160801, end: 20161023
  9. XANAX [Suspect]
     Active Substance: ALPRAZOLAM
     Dosage: 2.0 MG, 3X/DAY
     Route: 048
     Dates: start: 20170130, end: 20170213
  10. BLINDED CELECOXIB [Suspect]
     Active Substance: CELECOXIB
     Indication: OSTEOARTHRITIS
     Dosage: 1.0 ML EVERY 8 WEEKS
     Route: 058
     Dates: start: 20160831, end: 20161024
  11. BLINDED PLACEBO [Suspect]
     Active Substance: INVESTIGATIONAL PRODUCT
     Dosage: 100 MG, 2X/DAY
     Route: 048
     Dates: start: 20160801, end: 20161023
  12. BLINDED PLACEBO [Suspect]
     Active Substance: INVESTIGATIONAL PRODUCT
     Dosage: 100 MG, 2X/DAY
     Route: 048
     Dates: start: 20160801, end: 20161023
  13. XANAX [Suspect]
     Active Substance: ALPRAZOLAM
     Indication: ANXIETY
     Dosage: 1 MG, 1X/DAY
     Route: 048
  14. BLINDED CELECOXIB [Suspect]
     Active Substance: CELECOXIB
     Indication: OSTEOARTHRITIS
     Dosage: 1.0 ML EVERY 8 WEEKS
     Route: 058
     Dates: start: 20160831, end: 20161024
  15. BLINDED DICLOFENAC [Suspect]
     Active Substance: DICLOFENAC
     Indication: OSTEOARTHRITIS
     Dosage: 1.0 ML EVERY 8 WEEKS
     Route: 058
     Dates: start: 20160831, end: 20161024
  16. BLINDED PLACEBO [Suspect]
     Active Substance: INVESTIGATIONAL PRODUCT
     Indication: OSTEOARTHRITIS
     Dosage: 1.0 ML EVERY 8 WEEKS
     Route: 058
     Dates: start: 20160831, end: 20161024
  17. BLINDED DICLOFENAC [Suspect]
     Active Substance: DICLOFENAC
     Dosage: 100 MG, 2X/DAY
     Route: 048
     Dates: start: 20160801, end: 20161023
  18. BLINDED NAPROXEN [Suspect]
     Active Substance: NAPROXEN
     Dosage: 100 MG, 2X/DAY
     Route: 048
     Dates: start: 20160801, end: 20161023
  19. BLINDED PLACEBO [Suspect]
     Active Substance: INVESTIGATIONAL PRODUCT
     Dosage: 100 MG, 2X/DAY
     Route: 048
     Dates: start: 20160801, end: 20161023
  20. BENADRYL [Concomitant]
     Active Substance: DIPHENHYDRAMINE HYDROCHLORIDE
     Indication: SEASONAL ALLERGY
     Dosage: 25 MG, BID/PRN
     Route: 048
     Dates: start: 2014
  21. BLINDED DICLOFENAC [Suspect]
     Active Substance: DICLOFENAC
     Dosage: 100 MG, 2X/DAY
     Route: 048
     Dates: start: 20160801, end: 20161023
  22. BLINDED NAPROXEN [Suspect]
     Active Substance: NAPROXEN
     Indication: OSTEOARTHRITIS
     Dosage: 1.0 ML EVERY 8 WEEKS
     Route: 058
     Dates: start: 20160831, end: 20161024
  23. BLINDED CELECOXIB [Suspect]
     Active Substance: CELECOXIB
     Dosage: 100 MG, 2X/DAY
     Route: 048
     Dates: start: 20160801, end: 20161023
  24. BLINDED PF-04383119 [Suspect]
     Active Substance: TANEZUMAB
     Indication: OSTEOARTHRITIS
     Dosage: 1.0 ML EVERY 8 WEEKS
     Route: 058
     Dates: start: 20160831, end: 20161024
  25. BLINDED PF-04383119 [Suspect]
     Active Substance: TANEZUMAB
     Indication: OSTEOARTHRITIS
     Dosage: 1.0 ML EVERY 8 WEEKS
     Route: 058
     Dates: start: 20160831, end: 20161024
  26. BLINDED PLACEBO [Suspect]
     Active Substance: INVESTIGATIONAL PRODUCT
     Indication: OSTEOARTHRITIS
     Dosage: 1.0 ML EVERY 8 WEEKS
     Route: 058
     Dates: start: 20160831, end: 20161024
  27. BLINDED PF-04383119 [Suspect]
     Active Substance: TANEZUMAB
     Dosage: 100 MG, 2X/DAY
     Route: 048
     Dates: start: 20160801, end: 20161023
  28. TRINTELLIX [Suspect]
     Active Substance: VORTIOXETINE HYDROBROMIDE
     Indication: DEPRESSION
     Dosage: 10 MG, 1X/DAY (QD)
     Route: 048
     Dates: start: 20160916, end: 20170213

REACTIONS (1)
  - Depression [Recovered/Resolved]

NARRATIVE: CASE EVENT DATE: 20170213
